FAERS Safety Report 8602817 (Version 4)
Quarter: 2013Q2

REPORT INFORMATION
  Report Type: Report from Study
  Country: ES (occurrence: ES)
  Receive Date: 20120607
  Receipt Date: 20130527
  Transmission Date: 20140414
  Serious: Yes (Death, Other)
  Sender: FDA-Public Use
  Company Number: ES-ROCHE-1075575

PATIENT
  Sex: 0

DRUGS (2)
  1. CAPECITABINE [Suspect]
     Indication: RECTAL CANCER
     Dosage: MONDAY TO FRIDAY
     Route: 065
  2. OXALIPLATIN [Suspect]
     Indication: RECTAL CANCER
     Dosage: ON DAYS 1, 8 AND 15
     Route: 042

REACTIONS (10)
  - Pulmonary embolism [Fatal]
  - Diarrhoea [Unknown]
  - Proctitis [Unknown]
  - Faecal incontinence [Unknown]
  - Sepsis [Unknown]
  - Nausea [Unknown]
  - Vomiting [Unknown]
  - Leukopenia [Unknown]
  - Thrombocytopenia [Unknown]
  - Cardiotoxicity [Unknown]
